FAERS Safety Report 21999280 (Version 2)
Quarter: 2023Q1

REPORT INFORMATION
  Report Type: Spontaneous
  Country: JP (occurrence: JP)
  Receive Date: 20230216
  Receipt Date: 20230317
  Transmission Date: 20230417
  Serious: Yes (Hospitalization)
  Sender: FDA-Public Use
  Company Number: JP-MYLANLABS-2023M1015416

PATIENT
  Age: 72 Year
  Sex: Male
  Weight: 70.9 kg

DRUGS (8)
  1. PREGABALIN [Suspect]
     Active Substance: PREGABALIN
     Indication: Product used for unknown indication
     Dosage: UNK
     Route: 048
  2. BRAFTOVI [Suspect]
     Active Substance: ENCORAFENIB
     Indication: Colon cancer
     Dosage: 300 MILLIGRAM, QD
     Route: 048
     Dates: start: 20210608, end: 20210818
  3. BRAFTOVI [Suspect]
     Active Substance: ENCORAFENIB
     Dosage: 225 MILLIGRAM, QD
     Route: 048
     Dates: start: 20211005, end: 20211025
  4. BRAFTOVI [Suspect]
     Active Substance: ENCORAFENIB
     Dosage: 300 MILLIGRAM, QD
     Route: 048
     Dates: start: 20211026, end: 20220104
  5. CETUXIMAB [Concomitant]
     Active Substance: CETUXIMAB
     Indication: Colon cancer
     Dosage: 400 MILLIGRAM/SQ. METER
     Route: 065
     Dates: start: 20210608, end: 20210608
  6. CETUXIMAB [Concomitant]
     Active Substance: CETUXIMAB
     Dosage: 250 MILLIGRAM/SQ. METER
     Route: 065
     Dates: start: 20210615, end: 20210729
  7. CETUXIMAB [Concomitant]
     Active Substance: CETUXIMAB
     Dosage: 500 MILLIGRAM/SQ. METER
     Route: 065
     Dates: start: 20210805, end: 20210805
  8. CETUXIMAB [Concomitant]
     Active Substance: CETUXIMAB
     Dosage: 500 MILLIGRAM/SQ. METER
     Route: 065
     Dates: start: 20211005, end: 20211221

REACTIONS (1)
  - Blood bilirubin increased [Recovered/Resolved]

NARRATIVE: CASE EVENT DATE: 20210817
